FAERS Safety Report 8299743 (Version 2)
Quarter: 2012Q4

REPORT INFORMATION
  Report Type: Report from Study
  Country: GB (occurrence: GB)
  Receive Date: 20111219
  Receipt Date: 20121130
  Transmission Date: 20130627
  Serious: Yes (Other)
  Sender: FDA-Public Use
  Company Number: PHHO2011GB019462

PATIENT
  Age: 10 Year
  Sex: Male
  Weight: 53.95 kg

DRUGS (6)
  1. AMITRIPTYLINE [Suspect]
     Indication: PAIN
     Dosage: 10 mg, QD
     Dates: start: 20111101
  2. LDE 225 [Suspect]
     Indication: MEDULLOBLASTOMA
     Dosage: 650 mg, QD
     Route: 048
     Dates: start: 20111101
  3. GABAPENTIN [Concomitant]
     Indication: PAIN
     Dosage: 300/300/600mg
     Dates: start: 20111101
  4. SEVREDOL [Concomitant]
     Indication: PAIN
     Dosage: 150 mg, PRN
     Dates: start: 20111101
  5. OXYBUTYNIN [Concomitant]
     Indication: BLADDER SPASM
     Dosage: 8 mg, BID
     Dates: start: 20111101
  6. MIDAZOLAM [Concomitant]
     Indication: ANXIETY
     Dosage: 2.5 mg, PRN
     Dates: start: 20111101

REACTIONS (1)
  - Suicidal ideation [Recovered/Resolved]
